FAERS Safety Report 21124948 (Version 1)
Quarter: 2022Q3

REPORT INFORMATION
  Report Type: Spontaneous
  Country: US (occurrence: None)
  Receive Date: 20220722
  Receipt Date: 20220722
  Transmission Date: 20221026
  Serious: No
  Sender: FDA-Public Use
  Company Number: None

PATIENT
  Sex: Female

DRUGS (1)
  1. PLEGRIDY [Suspect]
     Active Substance: PEGINTERFERON BETA-1A
     Indication: Multiple sclerosis
     Dosage: OTHER QUANTITY : 125MCG;?FREQUENCY : EVERY OTHER WEEK;?
     Route: 058
     Dates: start: 20160329

REACTIONS (7)
  - Cerebrovascular accident [None]
  - Dementia [None]
  - Blood pressure fluctuation [None]
  - Abdominal discomfort [None]
  - Diarrhoea [None]
  - Inflammation [None]
  - Vulvovaginal discomfort [None]
